FAERS Safety Report 8410033-6 (Version None)
Quarter: 2012Q2

REPORT INFORMATION
  Report Type: 
  Country: None (occurrence: None)
  Receive Date: 20120605
  Receipt Date: 20120522
  Transmission Date: 20120825
  Serious: No
  Sender: FDA-Public Use
  Company Number: US-ENDO PHARMACEUTICALS INC.-ENDC20120033

PATIENT
  Sex: Male
  Weight: 111.23 kg

DRUGS (4)
  1. OXYCODONE HCL AND ACETAMINOPHEN [Suspect]
     Indication: ARTHRALGIA
     Dosage: UNKNOWN
     Route: 048
     Dates: start: 20080101
  2. PERCOCET [Concomitant]
     Indication: INTERVERTEBRAL DISC DISORDER
  3. PERCOCET [Concomitant]
     Indication: ARTHRALGIA
     Dosage: UNKNOWN
     Route: 048
     Dates: end: 20080101
  4. OXYCODONE HCL AND ACETAMINOPHEN [Suspect]
     Indication: INTERVERTEBRAL DISC DISORDER

REACTIONS (2)
  - SOMNOLENCE [None]
  - DRUG EFFECT DECREASED [None]
